FAERS Safety Report 18358531 (Version 1)
Quarter: 2020Q4

REPORT INFORMATION
  Report Type: Report from Study
  Country: US (occurrence: US)
  Receive Date: 20201008
  Receipt Date: 20201008
  Transmission Date: 20210114
  Serious: Yes (Other)
  Sender: FDA-Public Use
  Company Number: US-BRISTOL-MYERS SQUIBB COMPANY-BMS-2020-080806

PATIENT
  Age: 89 Year
  Sex: Female
  Weight: 68.03 kg

DRUGS (2)
  1. ABATACEPT [Suspect]
     Active Substance: ABATACEPT
     Indication: RHEUMATOID ARTHRITIS
     Dosage: UNK UNK, Q4WK
     Route: 042
  2. BABY ASPIRIN [Concomitant]
     Active Substance: ASPIRIN
     Indication: PRODUCT USED FOR UNKNOWN INDICATION
     Route: 065

REACTIONS (9)
  - Back disorder [Unknown]
  - Arthropathy [Unknown]
  - Immunoglobulins decreased [Unknown]
  - Cardiac failure congestive [Unknown]
  - Urinary tract infection [Unknown]
  - Spinal disorder [Unknown]
  - Limb discomfort [Unknown]
  - Renal impairment [Unknown]
  - Protein urine present [Unknown]

NARRATIVE: CASE EVENT DATE: 202008
